FAERS Safety Report 18674827 (Version 1)
Quarter: 2020Q4

REPORT INFORMATION
  Report Type: Spontaneous
  Country: FR (occurrence: FR)
  Receive Date: 20201229
  Receipt Date: 20201229
  Transmission Date: 20210114
  Serious: Yes (Hospitalization)
  Sender: FDA-Public Use
  Company Number: FR-BRISTOL-MYERS SQUIBB COMPANY-BMS-2020-110733

PATIENT
  Age: 61 Year
  Sex: Female
  Weight: 47 kg

DRUGS (5)
  1. YERVOY [Suspect]
     Active Substance: IPILIMUMAB
     Dosage: UNK
  2. YERVOY [Suspect]
     Active Substance: IPILIMUMAB
     Indication: METASTATIC MALIGNANT MELANOMA
     Dosage: 140 MILLIGRAM PER CYCLICAL
     Route: 041
     Dates: start: 20201020, end: 20201110
  3. OPDIVO [Suspect]
     Active Substance: NIVOLUMAB
     Indication: METASTATIC MALIGNANT MELANOMA
     Dosage: 48 MILLIGRAM PER CYCLICAL
     Route: 041
     Dates: start: 20201020, end: 20201110
  4. NERISONE [Concomitant]
     Active Substance: DIFLUCORTOLONE VALERATE
     Indication: INJECTION SITE RASH
     Dosage: UNK
     Route: 003
     Dates: start: 20201112, end: 20201118
  5. ARIXTRA [Concomitant]
     Active Substance: FONDAPARINUX SODIUM
     Indication: THROMBOSIS PROPHYLAXIS
     Dosage: 2.5 MILLIGRAM, QD
     Route: 058
     Dates: start: 20201110

REACTIONS (3)
  - Prescribed underdose [Unknown]
  - Rash maculo-papular [Recovering/Resolving]
  - Condition aggravated [Recovering/Resolving]

NARRATIVE: CASE EVENT DATE: 20201118
